FAERS Safety Report 15383598 (Version 1)
Quarter: 2018Q3

REPORT INFORMATION
  Report Type: Report from Study
  Country: DE (occurrence: DE)
  Receive Date: 20180913
  Receipt Date: 20180913
  Transmission Date: 20181010
  Serious: Yes (Other)
  Sender: FDA-Public Use
  Company Number: DE-SAKK-2018SA242638AA

PATIENT
  Sex: Male
  Weight: 84 kg

DRUGS (2)
  1. DOCETAXEL. [Suspect]
     Active Substance: DOCETAXEL
     Indication: PROSTATE CANCER
     Dosage: 0 MG, QCY
     Route: 042
     Dates: start: 20161206, end: 20161206
  2. DOCETAXEL. [Suspect]
     Active Substance: DOCETAXEL
     Dosage: 0 UNK
     Route: 042
     Dates: start: 20170613, end: 20170613

REACTIONS (8)
  - Cataract [Recovered/Resolved]
  - Thrombotic thrombocytopenic purpura [Recovered/Resolved]
  - Febrile neutropenia [Recovered/Resolved]
  - Febrile neutropenia [Recovered/Resolved]
  - Neutrophil count decreased [Unknown]
  - Anaemia [Unknown]
  - Febrile neutropenia [Recovered/Resolved]
  - Alopecia [Recovered/Resolved]

NARRATIVE: CASE EVENT DATE: 20161214
